FAERS Safety Report 7236515-0 (Version None)
Quarter: 2011Q1

REPORT INFORMATION
  Report Type: 
  Country: None (occurrence: None)
  Receive Date: 20110120
  Receipt Date: 20110112
  Transmission Date: 20110831
  Serious: Yes (Other)
  Sender: FDA-Public Use
  Company Number: FR-ASTRAZENECA-2011SE02406

PATIENT
  Age: 3150 Day
  Sex: Male

DRUGS (11)
  1. DEXAMETHASONE [Suspect]
     Route: 065
  2. BACTRIM [Suspect]
     Route: 048
  3. DEPOCYT [Suspect]
     Indication: MEDULLOBLASTOMA
     Route: 018
     Dates: start: 20090701
  4. MOPRAL [Suspect]
     Route: 048
  5. CELLTOP [Suspect]
     Route: 048
  6. RETINOIC ACID [Concomitant]
     Route: 065
     Dates: start: 20091101, end: 20100601
  7. VEPESID [Concomitant]
     Route: 065
     Dates: start: 20091101, end: 20100601
  8. DOLIPRANE [Suspect]
     Route: 048
  9. CODENFAN [Suspect]
     Route: 048
  10. ENDOXAN [Concomitant]
     Route: 065
     Dates: start: 20091101, end: 20100601
  11. TEMODAL [Concomitant]
     Route: 065
     Dates: start: 20091101, end: 20100601

REACTIONS (2)
  - GENERALISED OEDEMA [None]
  - OEDEMA [None]
